FAERS Safety Report 14245209 (Version 2)
Quarter: 2017Q4

REPORT INFORMATION
  Report Type: Spontaneous
  Country: PT (occurrence: PT)
  Receive Date: 20171202
  Receipt Date: 20171222
  Transmission Date: 20180321
  Serious: Yes (Hospitalization)
  Sender: FDA-Public Use
  Company Number: PT-AUROBINDO-AUR-APL-2017-43934

PATIENT
  Age: 72 Year
  Sex: Female

DRUGS (2)
  1. METRONIDAZOLE. [Suspect]
     Active Substance: METRONIDAZOLE
     Indication: ABSCESS
     Dosage: 500 MG, 8H/H
     Route: 065
  2. AMOXICILLIN+CLAVULANIC ACID [Concomitant]
     Active Substance: AMOXICILLIN\CLAVULANIC ACID
     Indication: ABSCESS
     Route: 065

REACTIONS (9)
  - Gait disturbance [Recovering/Resolving]
  - Dysarthria [Recovering/Resolving]
  - Sensory disturbance [Recovering/Resolving]
  - Cognitive disorder [Recovering/Resolving]
  - Ataxia [Recovering/Resolving]
  - Disorientation [Recovering/Resolving]
  - Hypoaesthesia [Recovering/Resolving]
  - Speech disorder [Recovering/Resolving]
  - Skin lesion [Recovering/Resolving]
